FAERS Safety Report 19718044 (Version 4)
Quarter: 2021Q4

REPORT INFORMATION
  Report Type: Spontaneous
  Country: US (occurrence: US)
  Receive Date: 20210818
  Receipt Date: 20211122
  Transmission Date: 20220303
  Serious: Yes (Other)
  Sender: FDA-Public Use
  Company Number: US-BIOGEN-2021BI01040629

PATIENT
  Age: 61 Year
  Sex: Female

DRUGS (13)
  1. TECFIDERA [Suspect]
     Active Substance: DIMETHYL FUMARATE
     Indication: Multiple sclerosis
     Route: 065
     Dates: start: 20140811
  2. TECFIDERA [Suspect]
     Active Substance: DIMETHYL FUMARATE
     Dosage: STARTING DOSE
     Route: 065
  3. TECFIDERA [Suspect]
     Active Substance: DIMETHYL FUMARATE
     Dosage: MAINTENANCE DOSE
     Route: 065
     Dates: end: 202107
  4. TECFIDERA [Suspect]
     Active Substance: DIMETHYL FUMARATE
     Route: 065
     Dates: start: 20140811, end: 20210815
  5. METOPROLOL TARTRATE [Concomitant]
     Active Substance: METOPROLOL TARTRATE
     Route: 065
  6. LETROZOLE [Concomitant]
     Active Substance: LETROZOLE
     Route: 065
  7. YEAST [Concomitant]
     Active Substance: YEAST
     Route: 065
  8. FLUTICASONE PROPIONATE [Concomitant]
     Active Substance: FLUTICASONE PROPIONATE
     Route: 065
  9. COENZYME Q10 [Concomitant]
     Active Substance: DIETARY SUPPLEMENT\UBIDECARENONE
     Route: 065
  10. ALPRAZOLAM ER [Concomitant]
     Active Substance: ALPRAZOLAM
     Route: 065
  11. GOODSENSE ASPIRIN [Concomitant]
     Route: 065
  12. ATORVASTATIN CALCIUM [Concomitant]
     Active Substance: ATORVASTATIN CALCIUM
     Route: 065
  13. AMITRIPTYLINE [Concomitant]
     Active Substance: AMITRIPTYLINE
     Route: 065

REACTIONS (11)
  - Spinal column injury [Unknown]
  - Product dose omission issue [Unknown]
  - Intentional product misuse [Unknown]
  - Stress [Unknown]
  - Depression [Unknown]
  - White blood cell count decreased [Unknown]
  - Memory impairment [Unknown]
  - Hypoaesthesia [Unknown]
  - Confusional state [Unknown]
  - Urinary incontinence [Recovered/Resolved]
  - Disturbance in attention [Unknown]

NARRATIVE: CASE EVENT DATE: 20210701
